FAERS Safety Report 9306217 (Version 1)
Quarter: 2013Q2

REPORT INFORMATION
  Report Type: Spontaneous
  Country: CH (occurrence: CH)
  Receive Date: 20130523
  Receipt Date: 20130523
  Transmission Date: 20140414
  Serious: Yes (Life-Threatening)
  Sender: FDA-Public Use
  Company Number: CH-GLAXOSMITHKLINE-B0892507A

PATIENT
  Age: 66 Year
  Sex: Male
  Weight: 83 kg

DRUGS (19)
  1. ZOFRAN [Suspect]
     Indication: PRODUCT USED FOR UNKNOWN INDICATION
     Dosage: 8MG PER DAY
     Route: 042
     Dates: start: 20130429, end: 20130429
  2. SOLUMEDROL [Suspect]
     Indication: PRODUCT USED FOR UNKNOWN INDICATION
     Dosage: 125MG PER DAY
     Route: 042
     Dates: start: 20130429, end: 20130429
  3. TAXOTERE [Suspect]
     Indication: NON-SMALL CELL LUNG CANCER
     Dosage: 100MG PER DAY
     Route: 042
     Dates: start: 20130429, end: 20130429
  4. FORTECORTIN [Suspect]
     Indication: PRODUCT USED FOR UNKNOWN INDICATION
     Dosage: 8MG TWICE PER DAY
     Route: 048
     Dates: start: 20130428, end: 20130429
  5. ASPIRIN CARDIO [Concomitant]
     Dosage: 100MG PER DAY
     Route: 048
  6. EXFORGE [Concomitant]
     Route: 048
  7. TOREM [Concomitant]
     Dosage: 2.5MG PER DAY
     Route: 048
  8. SELIPRAN [Concomitant]
     Dosage: 20MG PER DAY
     Route: 048
  9. LYRICA [Concomitant]
     Dosage: 75MG TWICE PER DAY
     Route: 048
  10. TARGIN [Concomitant]
     Route: 048
  11. OXYNORM [Concomitant]
     Route: 048
  12. TRANSIPEG [Concomitant]
     Route: 048
  13. LAXOBERON [Concomitant]
     Route: 048
  14. AMPHOMORONAL [Concomitant]
     Route: 048
  15. LANTUS [Concomitant]
     Route: 058
  16. NOVORAPID [Concomitant]
     Route: 058
  17. PULMICORT [Concomitant]
     Route: 055
  18. VENTOLIN [Concomitant]
     Route: 055
  19. SPIRIVA [Concomitant]
     Dosage: 18MCG PER DAY
     Route: 055

REACTIONS (3)
  - Type III immune complex mediated reaction [Recovered/Resolved]
  - Dyspnoea [Recovered/Resolved with Sequelae]
  - Hypotension [Recovered/Resolved]
